FAERS Safety Report 10759860 (Version 1)
Quarter: 2015Q1

REPORT INFORMATION
  Report Type: Other
  Country: DE (occurrence: DE)
  Receive Date: 20150203
  Receipt Date: 20150203
  Transmission Date: 20150721
  Serious: Yes (Death, Other)
  Sender: FDA-Public Use
  Company Number: DE-MYLANLABS-2015M1001953

PATIENT

DRUGS (11)
  1. ASS 100 [Concomitant]
     Active Substance: ASPIRIN
     Indication: ASSISTED FERTILISATION
     Dosage: 100 MG, QD (100 [MG/D ])
     Route: 064
     Dates: start: 20130906, end: 20140421
  2. UTROGEST [Concomitant]
     Active Substance: PROGESTERONE
     Indication: ASSISTED FERTILISATION
     Dosage: UNK
     Route: 064
  3. FOLS?URE RATIOPHARM [Concomitant]
     Indication: PROPHYLAXIS OF NEURAL TUBE DEFECT
     Dosage: 5 MG, QD (5 [MG/D ])
     Route: 064
     Dates: start: 20130906, end: 20140421
  4. BUSCOPAN [Concomitant]
     Active Substance: BUTYLSCOPOLAMINE BROMIDE
     Indication: KIDNEY INFECTION
     Dosage: UNK
     Route: 064
  5. PREDNISOLON [Suspect]
     Active Substance: PREDNISOLONE
     Indication: ASSISTED FERTILISATION
     Dosage: 5 MG, TID (15 [MG/D ])
     Route: 064
     Dates: start: 20130906, end: 20140421
  6. FRAGMIN [Concomitant]
     Active Substance: DALTEPARIN SODIUM
     Indication: ASSISTED FERTILISATION
     Dosage: 5000 IU, QD (5000 [IE/D ])
     Route: 064
  7. L-THYROXIN [Concomitant]
     Active Substance: LEVOTHYROXINE SODIUM
     Indication: AUTOIMMUNE THYROIDITIS
     Dosage: 175 ?G, QD (175 [?G/D ])
     Route: 064
     Dates: start: 20130906, end: 20140421
  8. SERTRALINE [Suspect]
     Active Substance: SERTRALINE HYDROCHLORIDE
     Indication: OBSESSIVE-COMPULSIVE DISORDER
     Dosage: 150 MG, QD (150 [MG/D ])
     Route: 064
     Dates: start: 20130906, end: 20140421
  9. NOVORAPID [Concomitant]
     Active Substance: INSULIN ASPART
     Indication: GESTATIONAL DIABETES
     Dosage: UNK
     Route: 064
  10. THYBON [Concomitant]
     Indication: AUTOIMMUNE THYROIDITIS
     Dosage: 10 ?G, QD (10 [?G/D ])
     Route: 064
     Dates: start: 20130906, end: 20131104
  11. CEFURAX [Concomitant]
     Active Substance: CEFUROXIME AXETIL
     Indication: KIDNEY INFECTION
     Dosage: UNK
     Route: 064

REACTIONS (3)
  - Pulmonary artery stenosis [Fatal]
  - Foetal exposure during pregnancy [Unknown]
  - Truncus arteriosus persistent [Fatal]
